FAERS Safety Report 9238888 (Version 2)
Quarter: 2013Q2

REPORT INFORMATION
  Report Type: Spontaneous
  Country: US (occurrence: US)
  Receive Date: 20130418
  Receipt Date: 20130605
  Transmission Date: 20140414
  Serious: Yes (Other)
  Sender: FDA-Public Use
  Company Number: US-TEVA-399071USA

PATIENT
  Age: 22 Year
  Sex: Female
  Weight: 65.83 kg

DRUGS (5)
  1. COPAXONE [Suspect]
     Indication: RELAPSING-REMITTING MULTIPLE SCLEROSIS
     Dates: start: 20130401
  2. ADVAIR [Concomitant]
     Indication: ASTHMA
  3. HYDROCODONE W/APAP [Concomitant]
     Indication: PAIN
     Route: 048
  4. ALBUTEROL [Concomitant]
     Indication: ASTHMA
  5. TOPAMAX [Concomitant]
     Indication: MULTIPLE SCLEROSIS
     Dosage: 100 MILLIGRAM DAILY;
     Route: 048

REACTIONS (5)
  - Optic neuritis [Recovered/Resolved]
  - Eye pain [Not Recovered/Not Resolved]
  - Headache [Recovered/Resolved]
  - Hypoaesthesia [Recovered/Resolved]
  - Speech disorder [Recovered/Resolved]
